FAERS Safety Report 16359497 (Version 1)
Quarter: 2019Q2

REPORT INFORMATION
  Report Type: Spontaneous
  Country: US (occurrence: US)
  Receive Date: 20190528
  Receipt Date: 20190528
  Transmission Date: 20190711
  Serious: Yes (Hospitalization, Other)
  Sender: FDA-Public Use
  Company Number: US-ASTRAZENECA-2019SE76461

PATIENT
  Age: 944 Month
  Sex: Male
  Weight: 93 kg

DRUGS (10)
  1. METOPROLOL SUCCINATE. [Suspect]
     Active Substance: METOPROLOL SUCCINATE
     Route: 048
     Dates: start: 201904
  2. LOSARTAN. [Concomitant]
     Active Substance: LOSARTAN
  3. BRILINTA [Suspect]
     Active Substance: TICAGRELOR
     Indication: STENT PLACEMENT
     Route: 048
     Dates: start: 201904, end: 201905
  4. FAMOTIDINE. [Concomitant]
     Active Substance: FAMOTIDINE
  5. CALCIUM [Concomitant]
     Active Substance: CALCIUM
     Dosage: 1500.0MG UNKNOWN
  6. MUCINEX DM [Concomitant]
     Active Substance: DEXTROMETHORPHAN HYDROBROMIDE\GUAIFENESIN
  7. BABY ASPIRIN [Concomitant]
     Active Substance: ASPIRIN
  8. PLAVIX [Concomitant]
     Active Substance: CLOPIDOGREL BISULFATE
  9. BRILINTA [Suspect]
     Active Substance: TICAGRELOR
     Indication: MYOCARDIAL INFARCTION
     Route: 048
     Dates: start: 201904, end: 201905
  10. ATORVASTATIN [Concomitant]
     Active Substance: ATORVASTATIN

REACTIONS (7)
  - Blood pressure diastolic decreased [Unknown]
  - Internal haemorrhage [Recovered/Resolved]
  - Cough [Recovering/Resolving]
  - Pulmonary congestion [Unknown]
  - Bronchospasm [Unknown]
  - Presyncope [Unknown]
  - Dyspnoea [Unknown]

NARRATIVE: CASE EVENT DATE: 201904
